FAERS Safety Report 10019881 (Version 2)
Quarter: 2014Q2

REPORT INFORMATION
  Report Type: Spontaneous
  Country: US (occurrence: US)
  Receive Date: 20140318
  Receipt Date: 20140618
  Transmission Date: 20141212
  Serious: No
  Sender: FDA-Public Use
  Company Number: US-GALDERMA-US14000390

PATIENT
  Age: 79 Year
  Sex: Female

DRUGS (14)
  1. MIRVASO (BRIMONIDINE) TOPICAL GEL, 0.33% [Suspect]
     Indication: ROSACEA
     Dosage: 0.33%
     Route: 061
     Dates: start: 201401, end: 20140128
  2. ORACEA (DOXYCYCLINE, USP) CAPSULES 40 MG [Concomitant]
     Indication: ROSACEA
     Dosage: 40 MG
     Route: 048
     Dates: start: 2012
  3. BENICAR [Concomitant]
     Indication: BLOOD PRESSURE
     Route: 048
  4. VICTOZA [Concomitant]
     Indication: DIABETES MELLITUS
     Dosage: 1.8CC
     Route: 058
     Dates: start: 201311
  5. CELEBREX [Concomitant]
     Indication: ARTHRITIS
     Route: 048
     Dates: start: 201312
  6. METOPROLOL [Concomitant]
     Indication: BLOOD PRESSURE
     Route: 048
     Dates: start: 2012
  7. METOPROLOL [Concomitant]
     Indication: HEART RATE IRREGULAR
  8. CITRICAL [Concomitant]
     Indication: SUPPLEMENTATION THERAPY
     Route: 048
  9. SUPER C COMPLEX [Concomitant]
     Indication: SUPPLEMENTATION THERAPY
     Route: 048
  10. FISH OIL [Concomitant]
     Indication: SUPPLEMENTATION THERAPY
     Route: 048
  11. CETAPHIL DAILY FACIAL CLEANSER [Concomitant]
     Indication: THERAPEUTIC SKIN CARE TOPICAL
     Route: 061
  12. EUCERIN MOISTURIZER [Concomitant]
     Indication: DRY SKIN PROPHYLAXIS
     Route: 061
  13. METROGEL  (METRONIDAZOLE) GEL, 1% [Concomitant]
     Indication: ROSACEA
     Dosage: 1%
     Route: 061
     Dates: start: 2013
  14. TRETINOIN [Concomitant]
     Indication: SKIN DISORDER
     Dosage: 0.5%
     Route: 061
     Dates: start: 2013

REACTIONS (7)
  - Condition aggravated [Recovered/Resolved]
  - Rash macular [Recovered/Resolved]
  - Pruritus [Recovered/Resolved]
  - Dermatitis allergic [Recovered/Resolved]
  - Erythema [Recovered/Resolved]
  - Off label use [Recovered/Resolved]
  - Rash erythematous [Recovered/Resolved]
